FAERS Safety Report 4497591-1 (Version None)
Quarter: 2004Q4

REPORT INFORMATION
  Report Type: 
  Country: None (occurrence: None)
  Receive Date: 20041108
  Receipt Date: 20041026
  Transmission Date: 20050328
  Serious: Yes (Other)
  Sender: FDA-Public Use
  Company Number: DE-JNJFOC-20041000543

PATIENT
  Sex: Female
  Weight: 90 kg

DRUGS (3)
  1. RISPERDAL [Suspect]
     Route: 049
  2. FLUOXETINE [Concomitant]
     Indication: DEPRESSION
     Route: 049
  3. DIAZEPAM [Concomitant]
     Route: 049

REACTIONS (2)
  - BLEPHAROSPASM [None]
  - WEIGHT INCREASED [None]
